FAERS Safety Report 7416989-2 (Version None)
Quarter: 2011Q2

REPORT INFORMATION
  Report Type: 
  Country: None (occurrence: None)
  Receive Date: 20110407
  Receipt Date: 20110324
  Transmission Date: 20111010
  Serious: Yes (Death)
  Sender: FDA-Public Use
  Company Number: 2009AP004380

PATIENT
  Age: 89 Year
  Sex: Female

DRUGS (15)
  1. ACETYLSALICYLIC ACID SRT [Concomitant]
  2. FORTISIP [Concomitant]
  3. BISOPROLOL [Concomitant]
  4. IRON [Concomitant]
  5. CARBIDIPA [Concomitant]
  6. CARBIMAZOLE [Concomitant]
  7. LACTOSE [Concomitant]
  8. LEVODOPA [Concomitant]
  9. SINEMET [Concomitant]
  10. RISPERIDONE [Suspect]
     Indication: PARKINSON'S DISEASE
     Dosage: PO
     Route: 048
  11. ROPINIROLE HYDROCHLORIDE [Suspect]
     Indication: PRODUCT USED FOR UNKNOWN INDICATION
     Dosage: 3 MG, TAB, QD, PO; 6 MG, TAB, QD, PO;
     Route: 048
  12. AMOXICILLIN TRIHYDRATE [Concomitant]
  13. FUROSEMIDE [Concomitant]
  14. SPARTEINE SULFATE [Concomitant]
  15. DIGOXIN [Concomitant]

REACTIONS (1)
  - WRONG DRUG ADMINISTERED [None]
